FAERS Safety Report 7372978-8 (Version None)
Quarter: 2011Q1

REPORT INFORMATION
  Report Type: 
  Country: None (occurrence: None)
  Receive Date: 20110324
  Receipt Date: 20110322
  Transmission Date: 20110831
  Serious: Yes (Hospitalization)
  Sender: FDA-Public Use
  Company Number: NO-PFIZER INC-2011062686

PATIENT
  Age: 81 Year
  Sex: Male

DRUGS (3)
  1. PROSCAR [Concomitant]
     Indication: PROSTATOMEGALY
     Route: 048
     Dates: start: 20110201
  2. ACETYLSALICYLIC ACID [Concomitant]
     Indication: ATRIAL FIBRILLATION
     Route: 048
     Dates: start: 20100101
  3. VIAGRA [Suspect]
     Indication: ERECTILE DYSFUNCTION
     Dosage: 25 MG, 1X/DAY
     Route: 048
     Dates: start: 20110313, end: 20110313

REACTIONS (1)
  - SWOLLEN TONGUE [None]
